FAERS Safety Report 8062763-6 (Version None)
Quarter: 2012Q1

REPORT INFORMATION
  Report Type: 
  Country: None (occurrence: None)
  Receive Date: 20120106
  Receipt Date: 20111222
  Transmission Date: 20120608
  Serious: Yes (Disabling, Other)
  Sender: FDA-Public Use
  Company Number: OMX-2011-00053

PATIENT
  Sex: Female

DRUGS (2)
  1. EVICEL [Suspect]
     Indication: PRODUCT USED FOR UNKNOWN INDICATION
     Dosage: ONCE, EPILESIONAL
     Dates: start: 20070214, end: 20070214
  2. APPLICATOR [Concomitant]

REACTIONS (3)
  - FAECAL INCONTINENCE [None]
  - DEVICE BREAKAGE [None]
  - PROCEDURAL PAIN [None]
